FAERS Safety Report 10083240 (Version 2)
Quarter: 2014Q2

REPORT INFORMATION
  Report Type: Spontaneous
  Country: BR (occurrence: BR)
  Receive Date: 20140417
  Receipt Date: 20140424
  Transmission Date: 20141212
  Serious: Yes (Death)
  Sender: FDA-Public Use
  Company Number: BR-ROCHE-1385426

PATIENT
  Sex: Female
  Weight: 74 kg

DRUGS (1)
  1. RIVOTRIL [Suspect]
     Indication: SEDATION
     Route: 065
     Dates: start: 2007

REACTIONS (1)
  - Dementia Alzheimer^s type [Fatal]
